FAERS Safety Report 25886196 (Version 3)
Quarter: 2025Q4

REPORT INFORMATION
  Report Type: Spontaneous
  Country: US (occurrence: US)
  Receive Date: 20251006
  Receipt Date: 20251013
  Transmission Date: 20260118
  Serious: No
  Sender: PFIZER
  Company Number: US-PFIZER INC-202500197235

PATIENT
  Age: 45 Year
  Sex: Male

DRUGS (1)
  1. VELSIPITY [Suspect]
     Active Substance: ETRASIMOD ARGININE
     Dosage: 2 MG

REACTIONS (4)
  - Cough [Not Recovered/Not Resolved]
  - Influenza like illness [Unknown]
  - Nasopharyngitis [Unknown]
  - Oropharyngeal pain [Unknown]
